FAERS Safety Report 12938940 (Version 1)
Quarter: 2016Q4

REPORT INFORMATION
  Report Type: Spontaneous
  Country: US (occurrence: US)
  Receive Date: 20161114
  Receipt Date: 20161114
  Transmission Date: 20170207
  Serious: Yes (Life-Threatening, Hospitalization)
  Sender: FDA-Public Use
  Company Number: None

PATIENT
  Age: 47 Year
  Sex: Male
  Weight: 67 kg

DRUGS (1)
  1. PROTAMINE SULFATE 250MG/ML [Suspect]
     Active Substance: PROTAMINE SULFATE
     Indication: HEPARIN NEUTRALISATION THERAPY
     Dosage: ?          OTHER FREQUENCY:1 DOSE;?
     Route: 042
     Dates: start: 20161101, end: 20161101

REACTIONS (2)
  - Bradycardia [None]
  - Anaphylactic reaction [None]

NARRATIVE: CASE EVENT DATE: 20161101
